FAERS Safety Report 21120842 (Version 1)
Quarter: 2022Q3

REPORT INFORMATION
  Report Type: Spontaneous
  Country: US (occurrence: None)
  Receive Date: 20220722
  Receipt Date: 20220722
  Transmission Date: 20221027
  Serious: Yes (Other)
  Sender: FDA-Public Use
  Company Number: None

PATIENT
  Age: 70 Year
  Sex: Male
  Weight: 77.85 kg

DRUGS (12)
  1. REVLIMID [Suspect]
     Active Substance: LENALIDOMIDE
     Indication: Plasma cell myeloma
     Dosage: FREQUENCY : DAILY;?
     Route: 048
  2. ATORVASTATIN [Concomitant]
     Active Substance: ATORVASTATIN
  3. CLARITIN [Concomitant]
     Active Substance: LORATADINE
  4. COLACE [Concomitant]
     Active Substance: DOCUSATE SODIUM
  5. DEXAMETHASONE [Concomitant]
     Active Substance: DEXAMETHASONE
  6. GEMZAR [Concomitant]
     Active Substance: GEMCITABINE HYDROCHLORIDE
  7. CARBOPLATIN [Concomitant]
     Active Substance: CARBOPLATIN
  8. GINGER [Concomitant]
     Active Substance: GINGER
  9. OMEGA 3 [Concomitant]
     Active Substance: CAPSAICIN
  10. METFORMIN [Concomitant]
     Active Substance: METFORMIN HYDROCHLORIDE
  11. OXYCODONE [Concomitant]
     Active Substance: OXYCODONE
  12. TRAMADOL [Concomitant]
     Active Substance: TRAMADOL

REACTIONS (1)
  - Platelet count decreased [None]

NARRATIVE: CASE EVENT DATE: 20220720
